FAERS Safety Report 8322730-1 (Version None)
Quarter: 2012Q2

REPORT INFORMATION
  Report Type: 
  Country: None (occurrence: None)
  Receive Date: 20120430
  Receipt Date: 20120424
  Transmission Date: 20120825
  Serious: Yes (Other)
  Sender: FDA-Public Use
  Company Number: JP-BRISTOL-MYERS SQUIBB COMPANY-16500720

PATIENT
  Age: 78 Year
  Sex: Female

DRUGS (4)
  1. RHEUMATREX [Concomitant]
     Indication: RHEUMATOID ARTHRITIS
     Dosage: CAP
     Dates: start: 20090512
  2. MEDROL [Concomitant]
     Indication: RHEUMATOID ARTHRITIS
     Dosage: 12MAY09-16MAR10,16MAR10-ONG;2MGX1/DAY
     Dates: start: 20090512
  3. ORENCIA [Suspect]
     Indication: RHEUMATOID ARTHRITIS
     Route: 041
     Dates: start: 20120131, end: 20120131
  4. METHOTREXATE [Concomitant]
     Indication: RHEUMATOID ARTHRITIS

REACTIONS (4)
  - HYPOALBUMINAEMIA [None]
  - JOINT EFFUSION [None]
  - FACE OEDEMA [None]
  - OEDEMA PERIPHERAL [None]
